FAERS Safety Report 6306460-3 (Version None)
Quarter: 2009Q3

REPORT INFORMATION
  Report Type: 
  Country: None (occurrence: None)
  Receive Date: 20090812
  Receipt Date: 20090805
  Transmission Date: 20100115
  Serious: Yes (Other)
  Sender: FDA-Public Use
  Company Number: US-ABBOTT-09P-163-0589707-00

PATIENT
  Sex: Female
  Weight: 79.45 kg

DRUGS (1)
  1. BIAXIN [Suspect]
     Indication: INFECTION
     Dates: start: 19980101

REACTIONS (5)
  - DYSPNOEA [None]
  - ERYTHEMA [None]
  - FEELING ABNORMAL [None]
  - PRURITUS [None]
  - SWELLING [None]
